FAERS Safety Report 11156675 (Version 1)
Quarter: 2015Q2

REPORT INFORMATION
  Report Type: Spontaneous
  Country: US (occurrence: None)
  Receive Date: 20150601
  Receipt Date: 20150601
  Transmission Date: 20150821
  Serious: Yes (Other)
  Sender: FDA-Public Use
  Company Number: None

PATIENT
  Age: 73 Year
  Sex: Female
  Weight: 65.77 kg

DRUGS (12)
  1. MULTI VITAMIN [Concomitant]
     Active Substance: VITAMINS
  2. QVAR [Suspect]
     Active Substance: BECLOMETHASONE DIPROPIONATE
     Indication: HYPERSENSITIVITY
     Dosage: 2 PUFFS  TWICE DAILY  INHALATION
     Route: 055
     Dates: start: 20150522, end: 20150525
  3. QVAR [Suspect]
     Active Substance: BECLOMETHASONE DIPROPIONATE
     Indication: COUGH
     Dosage: 2 PUFFS  TWICE DAILY  INHALATION
     Route: 055
     Dates: start: 20150522, end: 20150525
  4. ATORVASTATIN [Concomitant]
     Active Substance: ATORVASTATIN
  5. MCHC WITH BORON [Concomitant]
  6. PHILLIPS COLON HEALTH [Concomitant]
  7. QVAR [Suspect]
     Active Substance: BECLOMETHASONE DIPROPIONATE
     Indication: DYSPNOEA
     Dosage: 2 PUFFS  TWICE DAILY  INHALATION
     Route: 055
     Dates: start: 20150522, end: 20150525
  8. TUMS [Concomitant]
     Active Substance: CALCIUM CARBONATE
  9. K2 [Concomitant]
     Active Substance: JWH-018
  10. COQ10 [Concomitant]
     Active Substance: UBIDECARENONE
  11. FISH OIL [Concomitant]
     Active Substance: FISH OIL
  12. BABY ASPIRIN [Concomitant]
     Active Substance: ASPIRIN

REACTIONS (3)
  - Fatigue [None]
  - Dyspnoea [None]
  - Condition aggravated [None]

NARRATIVE: CASE EVENT DATE: 20150525
